FAERS Safety Report 8489271-2 (Version None)
Quarter: 2012Q3

REPORT INFORMATION
  Report Type: 
  Country: None (occurrence: None)
  Receive Date: 20120705
  Receipt Date: 20120628
  Transmission Date: 20120928
  Serious: No
  Sender: FDA-Public Use
  Company Number: US-PFIZER INC-2012156156

PATIENT
  Sex: Male
  Weight: 99 kg

DRUGS (2)
  1. FLECTOR [Suspect]
     Indication: PAIN IN EXTREMITY
  2. FLECTOR [Suspect]
     Indication: BACK PAIN
     Dosage: UNK
     Route: 062
     Dates: start: 20120624, end: 20120627

REACTIONS (4)
  - DIZZINESS [None]
  - MALAISE [None]
  - NAUSEA [None]
  - FALL [None]
